FAERS Safety Report 10227173 (Version 1)
Quarter: 2014Q2

REPORT INFORMATION
  Report Type: Spontaneous
  Country: US (occurrence: None)
  Receive Date: 20140609
  Receipt Date: 20140609
  Transmission Date: 20141212
  Serious: No
  Sender: FDA-Public Use
  Company Number: None

PATIENT
  Age: 51 Year
  Sex: Male
  Weight: 59.6 kg

DRUGS (6)
  1. CYCLOPHOSPHAMIDE [Suspect]
     Dates: end: 20140516
  2. DOXORUBICIN HYDROCHLORIDE [Suspect]
     Dates: end: 20140515
  3. ETOPOSIDE (VP-16) [Suspect]
     Dates: end: 20140515
  4. PREDNISONE [Suspect]
     Dates: end: 20140516
  5. RITUXIMAB (MOAB C2B8 ANTI CD20, CHIMERIC) [Suspect]
     Dates: end: 20140515
  6. VINCRISTINE SULFATE [Suspect]
     Dates: end: 20140515

REACTIONS (1)
  - Neutrophil count decreased [None]
